FAERS Safety Report 6005363-1 (Version None)
Quarter: 2008Q4

REPORT INFORMATION
  Report Type: 
  Country: None (occurrence: None)
  Receive Date: 20081216
  Receipt Date: 20081210
  Transmission Date: 20090506
  Serious: Yes (Death)
  Sender: FDA-Public Use
  Company Number: US-GILEAD-2008-0018724

PATIENT
  Sex: Female
  Weight: 68.554 kg

DRUGS (11)
  1. LETAIRIS [Suspect]
     Indication: PULMONARY HYPERTENSION
     Route: 048
     Dates: start: 20081017, end: 20081117
  2. CARDIZEM [Concomitant]
  3. COUMADIN [Concomitant]
  4. LASIX [Concomitant]
  5. VERAPAMIL [Concomitant]
  6. AMITRIPTYLINE HCL [Concomitant]
  7. LEVOTHYROXINE SODIUM [Concomitant]
  8. REGLAN [Concomitant]
  9. COLACE [Concomitant]
  10. ACIPHEX [Concomitant]
  11. MAGNESIUM HYDROXIDE TAB [Concomitant]

REACTIONS (6)
  - CONSTIPATION [None]
  - ELECTROMECHANICAL DISSOCIATION [None]
  - FEELING JITTERY [None]
  - NERVOUSNESS [None]
  - PULMONARY HYPERTENSION [None]
  - RESTLESSNESS [None]
